FAERS Safety Report 6986489-2 (Version None)
Quarter: 2010Q3

REPORT INFORMATION
  Report Type: 
  Country: None (occurrence: None)
  Receive Date: 20100915
  Receipt Date: 20090713
  Transmission Date: 20110219
  Serious: No
  Sender: FDA-Public Use
  Company Number: US-WYE-H10118609

PATIENT
  Sex: Female
  Weight: 71.28 kg

DRUGS (21)
  1. PRISTIQ [Suspect]
     Indication: DEPRESSION
     Route: 048
     Dates: start: 20090712
  2. ASPIRIN [Concomitant]
  3. CALCIUM [Concomitant]
  4. NEXIUM [Concomitant]
  5. IRON [Concomitant]
  6. LASIX [Concomitant]
  7. VICODIN [Concomitant]
  8. LUNESTA [Concomitant]
  9. METOPROLOL TARTRATE [Concomitant]
  10. SINGULAIR [Concomitant]
  11. MYFORTIC [Concomitant]
  12. TRENTAL [Concomitant]
  13. POTASSIUM [Concomitant]
  14. PHENERGAN [Concomitant]
  15. RAPAMUNE [Concomitant]
  16. TIMOLOL MALEATE [Concomitant]
  17. BACTRIM [Concomitant]
  18. VITAMIN D [Concomitant]
  19. PROCRIT [Concomitant]
  20. PRED FORTE [Concomitant]
  21. XANAX [Concomitant]

REACTIONS (4)
  - DIZZINESS [None]
  - NAUSEA [None]
  - NERVOUSNESS [None]
  - PALPITATIONS [None]
